FAERS Safety Report 9308147 (Version 1)
Quarter: 2013Q2

REPORT INFORMATION
  Report Type: Spontaneous
  Country: US (occurrence: US)
  Receive Date: 20130524
  Receipt Date: 20130524
  Transmission Date: 20140414
  Serious: Yes (Disabling)
  Sender: FDA-Public Use
  Company Number: US-PFIZER INC-2013158907

PATIENT
  Age: 29 Year
  Sex: 0

DRUGS (3)
  1. NEURONTIN [Suspect]
     Dosage: 300 MG, HS
     Route: 048
  2. ULTRAM [Concomitant]
     Dosage: UNK
  3. DEXILANT [Concomitant]
     Dosage: UNK

REACTIONS (1)
  - Fibromyalgia [Unknown]
